FAERS Safety Report 11246713 (Version 1)
Quarter: 2015Q3

REPORT INFORMATION
  Report Type: Spontaneous
  Country: US (occurrence: None)
  Receive Date: 20150706
  Receipt Date: 20150706
  Transmission Date: 20151125
  Serious: No
  Sender: FDA-Public Use
  Company Number: None

PATIENT
  Age: 44 Year
  Sex: Female
  Weight: 124.74 kg

DRUGS (5)
  1. TOPAMAX [Suspect]
     Active Substance: TOPIRAMATE
     Indication: BIPOLAR DISORDER
     Dosage: 1.5 PILLS ONCE DAILY TAKEN BY MOUTH
     Route: 048
     Dates: start: 20150525, end: 20150703
  2. LITHIUM CARB [Concomitant]
     Active Substance: LITHIUM CARBONATE
  3. PROZAC [Concomitant]
     Active Substance: FLUOXETINE HYDROCHLORIDE
  4. LEVOTHYROXIN [Concomitant]
     Active Substance: LEVOTHYROXINE
  5. ONE A DAY MULTI VITAMINS [Concomitant]

REACTIONS (2)
  - Dysmenorrhoea [None]
  - Menstruation delayed [None]

NARRATIVE: CASE EVENT DATE: 20150701
